FAERS Safety Report 5086467-7 (Version None)
Quarter: 2006Q3

REPORT INFORMATION
  Report Type: 
  Country: None (occurrence: None)
  Receive Date: 20060703
  Receipt Date: 20051209
  Transmission Date: 20061208
  Serious: No
  Sender: FDA-Public Use
  Company Number: 2005S1011796

PATIENT
  Age: 43 Year
  Sex: Male
  Weight: 88.905 kg

DRUGS (11)
  1. CLOZAPINE [Suspect]
     Indication: HALLUCINATION
     Dosage: 150 MG;HS;ORAL
     Route: 048
     Dates: start: 20051001
  2. ARIPIPRAZOLE [Concomitant]
  3. PAROXETINE HYDROCHLORIDE [Concomitant]
  4. OLANZAPINE [Concomitant]
  5. CLONAZEPAM [Concomitant]
  6. INSULIN GLARGINE [Concomitant]
  7. INSULIN LISPRO [Concomitant]
  8. FENOFIBRATE [Concomitant]
  9. METFORMIN HCL [Concomitant]
  10. RABEPRAZOLE SODIUM [Concomitant]
  11. ASPIRIN [Concomitant]

REACTIONS (2)
  - GRANULOCYTOPENIA [None]
  - LEUKOPENIA [None]
